FAERS Safety Report 9611939 (Version 2)
Quarter: 2013Q4

REPORT INFORMATION
  Report Type: Spontaneous
  Country: US (occurrence: US)
  Receive Date: 20131010
  Receipt Date: 20131010
  Transmission Date: 20140711
  Serious: Yes (Other)
  Sender: FDA-Public Use
  Company Number: US-JNJFOC-20130302082

PATIENT
  Age: 28 Year
  Sex: Female

DRUGS (5)
  1. TOPAMAX [Suspect]
     Indication: DEPRESSION
     Route: 048
     Dates: end: 2004
  2. TOPAMAX [Suspect]
     Indication: BIPOLAR DISORDER
     Route: 048
     Dates: end: 2004
  3. INSULIN [Suspect]
     Indication: TYPE 2 DIABETES MELLITUS
     Route: 065
  4. PRENATAL VITAMINS [Concomitant]
     Indication: PREGNANCY
     Route: 065
  5. IRON [Concomitant]
     Indication: PREGNANCY

REACTIONS (3)
  - Depression [Unknown]
  - Exposure during pregnancy [Recovered/Resolved]
  - Stress [Unknown]
